FAERS Safety Report 21670634 (Version 1)
Quarter: 2022Q4

REPORT INFORMATION
  Report Type: Other
  Country: US (occurrence: None)
  Receive Date: 20221202
  Receipt Date: 20221202
  Transmission Date: 20230113
  Serious: Yes (Other)
  Sender: FDA-Public Use
  Company Number: US-ROCHE-3229916

PATIENT
  Age: 81 Year
  Sex: Male

DRUGS (2)
  1. ATEZOLIZUMAB [Suspect]
     Active Substance: ATEZOLIZUMAB
     Indication: Leukaemia
     Dosage: DAYS 8 AND 22
     Route: 042
  2. GUADECITABINE [Suspect]
     Active Substance: GUADECITABINE
     Indication: Leukaemia
     Dosage: DOSE LEVEL 1?DAYS 1-5
     Route: 058

REACTIONS (1)
  - Pneumonitis [Unknown]
